FAERS Safety Report 16119728 (Version 1)
Quarter: 2019Q1

REPORT INFORMATION
  Report Type: Report from Study
  Country: US (occurrence: US)
  Receive Date: 20190326
  Receipt Date: 20190326
  Transmission Date: 20190418
  Serious: Yes (Hospitalization)
  Sender: FDA-Public Use
  Company Number: US-ACTELION-A-US2019-187992

PATIENT
  Age: 66 Year
  Sex: Female

DRUGS (2)
  1. OPSUMIT [Suspect]
     Active Substance: MACITENTAN
     Indication: PULMONARY ARTERIAL HYPERTENSION
     Dosage: 10 MG, QD
     Route: 048
  2. STELARA [Concomitant]
     Active Substance: USTEKINUMAB
     Dosage: 45 MG; EVERY 12 WEEKS
     Route: 058

REACTIONS (2)
  - Coronary artery disease [Recovering/Resolving]
  - Cardiac operation [Recovering/Resolving]

NARRATIVE: CASE EVENT DATE: 20190301
